FAERS Safety Report 12827610 (Version 1)
Quarter: 2016Q4

REPORT INFORMATION
  Report Type: Spontaneous
  Country: US (occurrence: US)
  Receive Date: 20161006
  Receipt Date: 20161006
  Transmission Date: 20170207
  Serious: No
  Sender: FDA-Public Use
  Company Number: US-INDIVIOR LIMITED-INDV-092351-2016

PATIENT

DRUGS (3)
  1. SUBOXONE [Suspect]
     Active Substance: BUPRENORPHINE HYDROCHLORIDE\NALOXONE HYDROCHLORIDE
     Indication: DRUG DEPENDENCE
     Dosage: UNK
     Route: 065
  2. HEROIN [Suspect]
     Active Substance: DIACETYLMORPHINE
     Indication: PRODUCT USED FOR UNKNOWN INDICATION
     Dosage: UNK
     Route: 065
  3. RBP-6000 [Suspect]
     Active Substance: BUPRENORPHINE
     Indication: DRUG DEPENDENCE
     Dosage: UNK
     Route: 058

REACTIONS (8)
  - Feeling abnormal [Recovered/Resolved]
  - Intentional underdose [Recovered/Resolved]
  - Nausea [Recovered/Resolved]
  - Anxiety [Unknown]
  - Hyperhidrosis [Recovered/Resolved]
  - Drug withdrawal syndrome [Unknown]
  - Drug diversion [Recovered/Resolved]
  - Drug abuse [Unknown]
